FAERS Safety Report 9121321 (Version 1)
Quarter: 2013Q1

REPORT INFORMATION
  Report Type: Spontaneous
  Country: ZW (occurrence: ZW)
  Receive Date: 20130225
  Receipt Date: 20130225
  Transmission Date: 20140127
  Serious: Yes (Hospitalization)
  Sender: FDA-Public Use
  Company Number: ZW-BAYER-2013-019530

PATIENT
  Age: 33 Year
  Sex: Female

DRUGS (2)
  1. NIFEDIPINE [Suspect]
     Indication: GESTATIONAL HYPERTENSION
  2. METHYLDOPA [Concomitant]
     Indication: GESTATIONAL HYPERTENSION

REACTIONS (4)
  - Pre-eclampsia [Recovered/Resolved]
  - Ascites [Recovered/Resolved]
  - Intestinal obstruction [Recovered/Resolved]
  - Exposure during pregnancy [None]
